FAERS Safety Report 9344249 (Version 1)
Quarter: 2013Q2

REPORT INFORMATION
  Report Type: Spontaneous
  Country: GB (occurrence: GB)
  Receive Date: 20130612
  Receipt Date: 20130612
  Transmission Date: 20140414
  Serious: Yes (Other)
  Sender: FDA-Public Use
  Company Number: GB-ELI_LILLY_AND_COMPANY-GB201306002037

PATIENT
  Age: 55 Year
  Sex: Male

DRUGS (2)
  1. ALIMTA [Suspect]
     Route: 042
  2. CISPLATIN [Concomitant]

REACTIONS (1)
  - Nephropathy toxic [Unknown]
